FAERS Safety Report 6664193-8 (Version None)
Quarter: 2010Q2

REPORT INFORMATION
  Report Type: 
  Country: None (occurrence: None)
  Receive Date: 20100401
  Receipt Date: 20100401
  Transmission Date: 20101027
  Serious: Yes (Hospitalization)
  Sender: FDA-Public Use
  Company Number: CA-PFIZER INC-2010034369

PATIENT
  Sex: Female
  Weight: 76 kg

DRUGS (7)
  1. EXEMESTANE [Suspect]
     Indication: BREAST CANCER
     Dosage: 25 MG, DAILY
     Route: 048
     Dates: start: 20091216, end: 20100110
  2. CALCIUM WITH VITAMIN D [Concomitant]
     Dosage: UNK
  3. LIPITOR [Concomitant]
     Indication: BLOOD CHOLESTEROL INCREASED
     Dosage: UNK
  4. ENALAPRIL [Concomitant]
     Indication: HYPERTENSION
     Dosage: UNK
  5. NAPROSYN [Concomitant]
     Dosage: UNK
  6. FLONASE [Concomitant]
     Dosage: UNK
  7. TYLENOL-500 [Concomitant]
     Dosage: UNK

REACTIONS (1)
  - HYPERSENSITIVITY [None]
